FAERS Safety Report 7753374-8 (Version None)
Quarter: 2011Q3

REPORT INFORMATION
  Report Type: 
  Country: None (occurrence: None)
  Receive Date: 20110915
  Receipt Date: 20110912
  Transmission Date: 20111222
  Serious: Yes (Hospitalization)
  Sender: FDA-Public Use
  Company Number: FR-ABBOTT-11P-056-0853798-00

PATIENT
  Age: 41 Year
  Sex: Female

DRUGS (11)
  1. DEPAKOTE [Suspect]
     Indication: PRODUCT USED FOR UNKNOWN INDICATION
     Route: 048
     Dates: start: 20110430, end: 20110606
  2. ZYPREXA [Suspect]
     Dosage: ONCE
     Route: 048
     Dates: start: 20110620, end: 20110704
  3. TRIHEXYPHENIDYL HYDROCHLORIDE [Suspect]
     Indication: PRODUCT USED FOR UNKNOWN INDICATION
     Route: 048
     Dates: start: 20110615, end: 20110704
  4. HALDOL [Suspect]
     Indication: PRODUCT USED FOR UNKNOWN INDICATION
     Route: 048
     Dates: start: 20110620, end: 20110630
  5. TERCIAN [Suspect]
     Indication: PRODUCT USED FOR UNKNOWN INDICATION
  6. DEPAKOTE [Suspect]
     Dosage: UNKNOWN
     Route: 048
     Dates: start: 20110622, end: 20110627
  7. LITHIUM CARBONATE [Suspect]
     Indication: PRODUCT USED FOR UNKNOWN INDICATION
     Route: 048
     Dates: start: 20110606, end: 20110703
  8. IMOVANE [Suspect]
     Indication: PRODUCT USED FOR UNKNOWN INDICATION
     Route: 048
     Dates: start: 20110606
  9. OXAZEPAM [Concomitant]
     Indication: PRODUCT USED FOR UNKNOWN INDICATION
     Dates: start: 20110430, end: 20110606
  10. RISPERDAL [Concomitant]
     Indication: PRODUCT USED FOR UNKNOWN INDICATION
     Dates: start: 20110606
  11. ZYPREXA [Suspect]
     Indication: PRODUCT USED FOR UNKNOWN INDICATION
     Dosage: ONCE
     Route: 048
     Dates: start: 20110403, end: 20110606

REACTIONS (5)
  - NEUTROPENIA [None]
  - CHOLESTASIS [None]
  - PROTEINURIA [None]
  - DRUG RASH WITH EOSINOPHILIA AND SYSTEMIC SYMPTOMS [None]
  - CYTOLYTIC HEPATITIS [None]
